FAERS Safety Report 8433755 (Version 7)
Quarter: 2020Q2

REPORT INFORMATION
  Report Type: Report from Study
  Country: JP (occurrence: JP)
  Receive Date: 20120229
  Receipt Date: 20200507
  Transmission Date: 20200714
  Serious: Yes (Hospitalization)
  Sender: FDA-Public Use
  Company Number: PHHO2012JP003248

PATIENT
  Age: 17 Year
  Sex: Male
  Weight: 41 kg

DRUGS (15)
  1. HIRUDOID [Concomitant]
     Active Substance: GLYCOSAMINOGLYCANS
     Indication: ECZEMA
     Dosage: UNK
     Route: 065
     Dates: start: 20100109
  2. AZUNOL [Concomitant]
     Indication: STOMATITIS
     Dosage: UNK
     Route: 049
     Dates: start: 20101201
  3. NAIXAN [Concomitant]
     Active Substance: NAPROXEN SODIUM
     Indication: POLYARTHRITIS
     Dosage: UNK
     Route: 048
     Dates: start: 20110310
  4. PREDONINE [Concomitant]
     Active Substance: PREDNISOLONE
     Dosage: 2 MG, QD
     Route: 048
     Dates: start: 20130826, end: 20130926
  5. ILARIS [Suspect]
     Active Substance: CANAKINUMAB
     Indication: CHRONIC INFANTILE NEUROLOGICAL CUTANEOUS AND ARTICULAR SYNDROME
  6. RINDERON VG [Concomitant]
     Active Substance: BETAMETHASONE VALERATE\GENTAMICIN SULFATE
     Indication: ECZEMA
     Dosage: UNK, BID
     Route: 065
     Dates: start: 200906
  7. PREDONINE [Concomitant]
     Active Substance: PREDNISOLONE
     Indication: CRYOPYRIN ASSOCIATED PERIODIC SYNDROME
     Dosage: 5 MG, QD
     Route: 048
     Dates: end: 20121122
  8. PREDONINE [Concomitant]
     Active Substance: PREDNISOLONE
     Dosage: 4 MG, QD
     Route: 048
     Dates: start: 20121123, end: 20130117
  9. ALEGYSAL [Concomitant]
     Indication: CONJUNCTIVITIS ALLERGIC
     Dosage: UNK
     Route: 057
     Dates: start: 20110811
  10. ILARIS [Suspect]
     Active Substance: CANAKINUMAB
     Indication: CRYOPYRIN ASSOCIATED PERIODIC SYNDROME
     Dosage: UNK
     Route: 058
     Dates: start: 20100107, end: 20120126
  11. ACUATIM [Concomitant]
     Active Substance: NADIFLOXACIN
     Indication: ECZEMA
     Dosage: UNK, QD
     Route: 065
     Dates: start: 20100623
  12. GASTER [Concomitant]
     Active Substance: FAMOTIDINE
     Indication: PROPHYLAXIS AGAINST GASTROINTESTINAL ULCER
     Dosage: 20 MG, QD
     Route: 048
     Dates: start: 20110310, end: 20130117
  13. PREDONINE [Concomitant]
     Active Substance: PREDNISOLONE
     Dosage: 3 MG, QD
     Route: 048
     Dates: start: 20130118, end: 20130825
  14. LOXONIN [Concomitant]
     Active Substance: LOXOPROFEN SODIUM
     Indication: CRYOPYRIN ASSOCIATED PERIODIC SYNDROME
     Dosage: UNK
     Route: 048
     Dates: start: 20100109
  15. HIRUDOID [Concomitant]
     Active Substance: GLYCOSAMINOGLYCANS
     Indication: DERMATITIS ATOPIC
     Dosage: UNK
     Route: 065
     Dates: start: 20100623

REACTIONS (7)
  - Nasopharyngitis [Recovered/Resolved]
  - Appendicitis [Recovered/Resolved]
  - Otitis externa [Recovered/Resolved]
  - Bronchitis [Recovered/Resolved]
  - Diarrhoea [Recovered/Resolved]
  - Oropharyngeal pain [Recovered/Resolved]
  - Tooth injury [Recovered/Resolved]

NARRATIVE: CASE EVENT DATE: 20111102
